FAERS Safety Report 19234458 (Version 1)
Quarter: 2021Q2

REPORT INFORMATION
  Report Type: Spontaneous
  Country: US (occurrence: US)
  Receive Date: 20210508
  Receipt Date: 20210508
  Transmission Date: 20210717
  Serious: Yes (Hospitalization, Other)
  Sender: FDA-Public Use
  Company Number: US-UNITED THERAPEUTICS-UNT-2021-007789

PATIENT
  Sex: Female

DRUGS (7)
  1. REMODULIN [Suspect]
     Active Substance: TREPROSTINIL
     Indication: HEART DISEASE CONGENITAL
     Dosage: 0.020 ?G/KG, CONTINUING
     Route: 041
  2. HEPARIN [Concomitant]
     Active Substance: HEPARIN SODIUM
     Indication: ANTICOAGULANT THERAPY
     Dosage: UNK
     Route: 065
  3. REMODULIN [Suspect]
     Active Substance: TREPROSTINIL
     Indication: PULMONARY ARTERIAL HYPERTENSION
     Dosage: 0.002 ?G/KG, CONTINUING
     Route: 041
  4. REMODULIN [Suspect]
     Active Substance: TREPROSTINIL
     Indication: RIGHT-TO-LEFT CARDIAC SHUNT
  5. SILDENAFIL. [Concomitant]
     Active Substance: SILDENAFIL
     Indication: PULMONARY ARTERIAL HYPERTENSION
     Dosage: UNK
     Route: 048
  6. SILDENAFIL. [Concomitant]
     Active Substance: SILDENAFIL
     Indication: RIGHT-TO-LEFT CARDIAC SHUNT
  7. SILDENAFIL. [Concomitant]
     Active Substance: SILDENAFIL
     Indication: HEART DISEASE CONGENITAL

REACTIONS (8)
  - Thrombocytopenia [Unknown]
  - Oligohydramnios [Unknown]
  - Sepsis [Unknown]
  - Device related bacteraemia [Unknown]
  - Umbilical cord abnormality [Unknown]
  - Intra-abdominal haemorrhage [Unknown]
  - Maternal exposure during pregnancy [Recovered/Resolved]
  - Cardiac failure [Unknown]
